FAERS Safety Report 24664957 (Version 2)
Quarter: 2024Q4

REPORT INFORMATION
  Report Type: Report from Study
  Country: US (occurrence: US)
  Receive Date: 20241126
  Receipt Date: 20241225
  Transmission Date: 20250114
  Serious: Yes (Hospitalization, Other)
  Sender: ABBVIE
  Company Number: US-ABBVIE-6013114

PATIENT
  Age: 92 Year
  Sex: Male
  Weight: 63.956 kg

DRUGS (1)
  1. HUMIRA [Suspect]
     Active Substance: ADALIMUMAB
     Indication: Crohn^s disease
     Dosage: CITRATE FREE, FORM STRENGTH: 40 MILIGRAM
     Route: 058
     Dates: start: 20111101

REACTIONS (4)
  - Intestinal obstruction [Recovered/Resolved]
  - Hospitalisation [Recovered/Resolved]
  - Cardiac disorder [Unknown]
  - Eye disorder [Unknown]

NARRATIVE: CASE EVENT DATE: 20240901
